FAERS Safety Report 5340010-3 (Version None)
Quarter: 2007Q2

REPORT INFORMATION
  Report Type: 
  Country: None (occurrence: None)
  Receive Date: 20070531
  Receipt Date: 20070529
  Transmission Date: 20071010
  Serious: Yes (Death)
  Sender: FDA-Public Use
  Company Number: US-BRISTOL-MYERS SQUIBB COMPANY-13796321

PATIENT
  Sex: Female
  Weight: 77 kg

DRUGS (5)
  1. COUMADIN [Suspect]
  2. NEURONTIN [Concomitant]
  3. EFFEXOR XR [Concomitant]
  4. CRESTOR [Concomitant]
  5. XOPENEX [Concomitant]

REACTIONS (1)
  - DEATH [None]
